FAERS Safety Report 7666340-8 (Version None)
Quarter: 2011Q3

REPORT INFORMATION
  Report Type: 
  Country: None (occurrence: None)
  Receive Date: 20110806
  Receipt Date: 20110318
  Transmission Date: 20111222
  Serious: No
  Sender: FDA-Public Use
  Company Number: US-ABBOTT-11P-163-0712726-00

PATIENT
  Sex: Female

DRUGS (2)
  1. NIASPAN [Suspect]
  2. NIASPAN [Suspect]
     Indication: BLOOD CHOLESTEROL

REACTIONS (3)
  - PALPITATIONS [None]
  - MALAISE [None]
  - CHILLS [None]
